FAERS Safety Report 13981344 (Version 1)
Quarter: 2017Q3

REPORT INFORMATION
  Report Type: Spontaneous
  Country: US (occurrence: US)
  Receive Date: 20170918
  Receipt Date: 20170918
  Transmission Date: 20171128
  Serious: No
  Sender: FDA-Public Use
  Company Number: US-PFIZER INC-2017399217

PATIENT
  Age: 77 Year
  Sex: Female
  Weight: 74.84 kg

DRUGS (6)
  1. NAPROXEN. [Concomitant]
     Active Substance: NAPROXEN
     Indication: PAIN
     Dosage: 500 MG, DAILY (WITH MEALS)
     Route: 048
  2. VALACICLOVIR [Concomitant]
     Active Substance: VALACYCLOVIR HYDROCHLORIDE
     Dosage: 1 G, 1X/DAY
  3. AMBIEN [Concomitant]
     Active Substance: ZOLPIDEM TARTRATE
     Indication: SLEEP DISORDER
     Dosage: 5 MG, AS NEEDED
  4. VALACICLOVIR [Concomitant]
     Active Substance: VALACYCLOVIR HYDROCHLORIDE
     Dosage: 3 DF, DAILY
     Dates: start: 201708
  5. LYRICA [Suspect]
     Active Substance: PREGABALIN
     Indication: HERPES ZOSTER
     Dosage: 50 MG, 2X/DAY (MORNING AND SUPPER)
     Dates: start: 201709, end: 201709
  6. LYRICA [Suspect]
     Active Substance: PREGABALIN
     Indication: HEADACHE

REACTIONS (4)
  - Dizziness [Not Recovered/Not Resolved]
  - Vision blurred [Not Recovered/Not Resolved]
  - Somnolence [Unknown]
  - Diplopia [Unknown]
